FAERS Safety Report 9888602 (Version 1)
Quarter: 2014Q1

REPORT INFORMATION
  Report Type: Spontaneous
  Country: US (occurrence: None)
  Receive Date: 20140207
  Receipt Date: 20140207
  Transmission Date: 20141002
  Serious: Yes (Other)
  Sender: FDA-Public Use
  Company Number: SYM-2014-16262

PATIENT
  Age: 35 Year
  Sex: Male

DRUGS (8)
  1. LORAZEPAM [Suspect]
     Indication: PRODUCT USED FOR UNKNOWN INDICATION
     Route: 048
  2. MORPHINE [Suspect]
     Indication: PRODUCT USED FOR UNKNOWN INDICATION
     Route: 048
  3. GABAPENTIN (GABAPENTIN) (GABAPENTIN) [Suspect]
     Route: 048
  4. HYDROXYZINE (HYDROXYZINE) (HYDROXYZINE) [Suspect]
     Indication: PRODUCT USED FOR UNKNOWN INDICATION
     Route: 048
  5. TRAMADOL (TRAMADOL) (TRAMADOL) [Suspect]
     Indication: PRODUCT USED FOR UNKNOWN INDICATION
     Route: 048
  6. OMEPRAZOLE (OMEPRAZOLE) (OMEPRAZOLE) [Suspect]
     Indication: PRODUCT USED FOR UNKNOWN INDICATION
     Route: 048
  7. ALPRAZOLAM (ALPRAZOLAM) (ALPRAZOLAM) [Suspect]
     Indication: PRODUCT USED FOR UNKNOWN INDICATION
     Route: 048
  8. PAROXETINE (PAROXETINE) (PAROXETINE) [Suspect]
     Route: 048

REACTIONS (2)
  - Poisoning [None]
  - Exposure via ingestion [None]
